FAERS Safety Report 6186137-8 (Version None)
Quarter: 2009Q2

REPORT INFORMATION
  Report Type: 
  Country: None (occurrence: None)
  Receive Date: 20090511
  Receipt Date: 20090429
  Transmission Date: 20091009
  Serious: Yes (Hospitalization)
  Sender: FDA-Public Use
  Company Number: US-BRISTOL-MYERS SQUIBB COMPANY-14468045

PATIENT
  Age: 74 Year
  Sex: Female

DRUGS (10)
  1. DASATINIB [Suspect]
     Indication: NON-HODGKIN'S LYMPHOMA
     Dosage: INITIATED ON 25NOV08
     Route: 048
     Dates: start: 20081125, end: 20090322
  2. DASATINIB [Suspect]
     Indication: CHRONIC LYMPHOCYTIC LEUKAEMIA
     Dosage: INITIATED ON 25NOV08
     Route: 048
     Dates: start: 20081125, end: 20090322
  3. TENORMIN [Concomitant]
  4. MULTI-VITAMINS [Concomitant]
  5. ZYRTEC [Concomitant]
  6. NASONEX [Concomitant]
     Route: 045
  7. ATROVENT [Concomitant]
     Route: 045
  8. COUMADIN [Concomitant]
  9. LORAZEPAM [Concomitant]
  10. FAMOTIDINE [Concomitant]
     Route: 048

REACTIONS (4)
  - ASTHENIA [None]
  - PLEURAL EFFUSION [None]
  - PYREXIA [None]
  - VOMITING [None]
